FAERS Safety Report 5861195-6 (Version None)
Quarter: 2008Q3

REPORT INFORMATION
  Report Type: 
  Country: None (occurrence: None)
  Receive Date: 20080827
  Receipt Date: 20080319
  Transmission Date: 20090109
  Serious: No
  Sender: FDA-Public Use
  Company Number: US-ABBOTT-08P-163-0443337-00

PATIENT
  Sex: Male
  Weight: 97.61 kg

DRUGS (3)
  1. NIASPAN [Suspect]
     Indication: BLOOD TRIGLYCERIDES INCREASED
     Route: 048
     Dates: start: 19980101, end: 20080301
  2. NIASPAN [Suspect]
     Dosage: COATED
     Dates: start: 20080301
  3. FISH OIL [Concomitant]
     Indication: BLOOD TRIGLYCERIDES
     Route: 048

REACTIONS (7)
  - DIARRHOEA [None]
  - FALL [None]
  - FLUSHING [None]
  - JOINT SPRAIN [None]
  - PAIN [None]
  - PRURITUS [None]
  - TENDON INJURY [None]
